FAERS Safety Report 16028553 (Version 1)
Quarter: 2019Q1

REPORT INFORMATION
  Report Type: Spontaneous
  Country: JP (occurrence: JP)
  Receive Date: 20190304
  Receipt Date: 20190304
  Transmission Date: 20190418
  Serious: Yes (Life-Threatening, Other)
  Sender: FDA-Public Use
  Company Number: JP-ROCHE-2271310

PATIENT
  Age: 8 Week
  Sex: Female

DRUGS (2)
  1. TAMIFLU [Suspect]
     Active Substance: OSELTAMIVIR PHOSPHATE
     Indication: INFLUENZA
     Dosage: DRY SYRUP 3%
     Route: 048
     Dates: start: 20190205
  2. MUCODYNE [Suspect]
     Active Substance: CARBOCYSTEINE
     Indication: PRODUCT USED FOR UNKNOWN INDICATION
     Route: 048
     Dates: start: 20190207

REACTIONS (6)
  - Selective eating disorder [Unknown]
  - Hepatic failure [Unknown]
  - Jaundice [Not Recovered/Not Resolved]
  - Hypoglycaemia [Unknown]
  - Vomiting [Unknown]
  - Wheezing [Unknown]

NARRATIVE: CASE EVENT DATE: 20190206
